FAERS Safety Report 7783681-4 (Version None)
Quarter: 2011Q3

REPORT INFORMATION
  Report Type: 
  Country: None (occurrence: None)
  Receive Date: 20110928
  Receipt Date: 20110920
  Transmission Date: 20111222
  Serious: Yes (Death, Hospitalization)
  Sender: FDA-Public Use
  Company Number: US-GILEAD-2011-0042983

PATIENT

DRUGS (3)
  1. ADCIRCA [Concomitant]
  2. LETAIRIS [Suspect]
     Indication: PULMONARY HYPERTENSION
     Route: 048
     Dates: start: 20090813
  3. LETAIRIS [Suspect]
     Indication: SARCOIDOSIS

REACTIONS (2)
  - PNEUMONIA [None]
  - CARDIAC FAILURE [None]
